FAERS Safety Report 11114366 (Version 1)
Quarter: 2015Q2

REPORT INFORMATION
  Report Type: Spontaneous
  Country: GB (occurrence: GB)
  Receive Date: 20150514
  Receipt Date: 20150514
  Transmission Date: 20150821
  Serious: Yes (Other)
  Sender: FDA-Public Use
  Company Number: GB-009507513-1505GBR004069

PATIENT
  Age: 77 Year
  Sex: Male

DRUGS (2)
  1. PROPECIA [Suspect]
     Active Substance: FINASTERIDE
     Indication: SKIN DISORDER
  2. PROPECIA [Suspect]
     Active Substance: FINASTERIDE
     Indication: URINARY TRACT DISORDER
     Dosage: 1 TABLET, QD
     Route: 048

REACTIONS (3)
  - Lung neoplasm [Unknown]
  - Drug administration error [Unknown]
  - Therapeutic response unexpected [Unknown]
